FAERS Safety Report 7073892-8 (Version None)
Quarter: 2010Q4

REPORT INFORMATION
  Report Type: 
  Country: None (occurrence: None)
  Receive Date: 20101029
  Receipt Date: 20101021
  Transmission Date: 20110411
  Serious: Yes (Life-Threatening, Hospitalization)
  Sender: FDA-Public Use
  Company Number: US-ABBOTT-03P-163-0528014-00

PATIENT
  Age: 22 Year
  Sex: Female

DRUGS (2)
  1. LUPRON [Suspect]
     Indication: OOCYTE DONATION
     Route: 050
  2. ORAL CONTRACEPTIVE NOS [Concomitant]
     Indication: MENSTRUATION IRREGULAR
     Route: 048

REACTIONS (17)
  - AMNESIA [None]
  - CEREBROVASCULAR SPASM [None]
  - COGNITIVE DISORDER [None]
  - COMA [None]
  - CONDITION AGGRAVATED [None]
  - DIABETES INSIPIDUS [None]
  - HEADACHE [None]
  - HEMIPLEGIA [None]
  - HYPONATRAEMIA [None]
  - LETHARGY [None]
  - MUSCULOSKELETAL STIFFNESS [None]
  - MYDRIASIS [None]
  - PHOTOPHOBIA [None]
  - PITUITARY TUMOUR BENIGN [None]
  - PUPIL FIXED [None]
  - PYREXIA [None]
  - VOMITING [None]
